FAERS Safety Report 7420265-1 (Version None)
Quarter: 2011Q2

REPORT INFORMATION
  Report Type: 
  Country: None (occurrence: None)
  Receive Date: 20110418
  Receipt Date: 20110406
  Transmission Date: 20111010
  Serious: Yes (Other)
  Sender: FDA-Public Use
  Company Number: US-JNJFOC-20110403790

PATIENT
  Sex: Female

DRUGS (7)
  1. OXYCODONE [Concomitant]
     Indication: PAIN
     Dosage: UPTO 7 A DAY
     Route: 065
  2. OXYCODONE [Concomitant]
     Indication: BREAKTHROUGH PAIN
     Dosage: 1 0R 2 A DAY
     Route: 065
  3. OXYCODONE [Concomitant]
     Dosage: UPTO 7 A DAY
     Route: 065
  4. OXYCODONE [Concomitant]
     Dosage: 1 0R 2 A DAY
     Route: 065
  5. DURAGESIC [Suspect]
     Indication: PAIN
     Route: 062
  6. FLEXERIL [Suspect]
     Indication: PRODUCT USED FOR UNKNOWN INDICATION
     Dosage: UPTO 3 A DAY
     Route: 048
  7. BACLOFEN [Concomitant]
     Indication: PRODUCT USED FOR UNKNOWN INDICATION
     Dosage: 2 TABS A 2-3 TIMES A DAY
     Route: 065

REACTIONS (6)
  - WRONG TECHNIQUE IN DRUG USAGE PROCESS [None]
  - DRUG DEPENDENCE [None]
  - DERMATITIS CONTACT [None]
  - DRUG DOSE OMISSION [None]
  - PAIN [None]
  - PRODUCT QUALITY ISSUE [None]
